FAERS Safety Report 9808071 (Version 1)
Quarter: 2014Q1

REPORT INFORMATION
  Report Type: Spontaneous
  Country: ES (occurrence: None)
  Receive Date: 20140108
  Receipt Date: 20140108
  Transmission Date: 20141002
  Serious: Yes (Other)
  Sender: FDA-Public Use
  Company Number: 2014P1000051

PATIENT
  Age: 1 Day
  Sex: Male

DRUGS (1)
  1. VALPROIC [Suspect]
     Dosage: 1200 MG, QD, TRPL
     Route: 064

REACTIONS (26)
  - Hypofibrinogenaemia [None]
  - Maternal drugs affecting foetus [None]
  - Caesarean section [None]
  - Ecchymosis [None]
  - Petechiae [None]
  - Mean arterial pressure decreased [None]
  - Cardiac murmur [None]
  - Umbilical haemorrhage [None]
  - Hypertonia [None]
  - Irritability [None]
  - Vomiting [None]
  - Atrial septal defect [None]
  - Hypoglycaemia neonatal [None]
  - Drug withdrawal syndrome neonatal [None]
  - Grunting [None]
  - Tachypnoea [None]
  - Cyanosis central [None]
  - No therapeutic response [None]
  - Prothrombin level decreased [None]
  - Coagulation factor VII level decreased [None]
  - Coagulation factor IX level decreased [None]
  - Coagulation factor X level decreased [None]
  - Coagulation factor XI level decreased [None]
  - Coagulation factor XII level decreased [None]
  - Protein C decreased [None]
  - Food intolerance [None]
